FAERS Safety Report 6323937-5 (Version None)
Quarter: 2009Q3

REPORT INFORMATION
  Report Type: 
  Country: None (occurrence: None)
  Receive Date: 20090824
  Receipt Date: 20090814
  Transmission Date: 20100115
  Serious: Yes (Death)
  Sender: FDA-Public Use
  Company Number: A0783853A

PATIENT
  Sex: Female

DRUGS (2)
  1. ADVAIR HFA [Suspect]
     Indication: DRUG USE FOR UNKNOWN INDICATION
     Route: 055
  2. SEREVENT [Suspect]
     Indication: DRUG USE FOR UNKNOWN INDICATION
     Route: 055

REACTIONS (6)
  - ANAPHYLACTIC REACTION [None]
  - CARDIAC ARREST [None]
  - FALL [None]
  - PNEUMOTHORAX [None]
  - RESPIRATORY ARREST [None]
  - STATUS ASTHMATICUS [None]
